FAERS Safety Report 24595163 (Version 2)
Quarter: 2025Q3

REPORT INFORMATION
  Report Type: Report from Study
  Country: US (occurrence: US)
  Receive Date: 20241108
  Receipt Date: 20250803
  Transmission Date: 20251020
  Serious: Yes (Other)
  Sender: ALEXION PHARMACEUTICALS
  Company Number: US-ASTRAZENECA-202410USA029367US

PATIENT
  Sex: Male

DRUGS (7)
  1. BENRALIZUMAB [Suspect]
     Active Substance: BENRALIZUMAB
     Indication: Pneumonia
     Dosage: 30 MILLIGRAM, Q8W
  2. SYMBICORT [Concomitant]
     Active Substance: BUDESONIDE\FORMOTEROL FUMARATE DIHYDRATE
  3. REPATHA [Concomitant]
     Active Substance: EVOLOCUMAB
  4. AMLODIPINE [Concomitant]
     Active Substance: AMLODIPINE BESYLATE
  5. ATORVASTATIN [Concomitant]
     Active Substance: ATORVASTATIN
  6. JARDIANCE [Concomitant]
     Active Substance: EMPAGLIFLOZIN
  7. PREDNISONE [Concomitant]
     Active Substance: PREDNISONE

REACTIONS (1)
  - Diabetes mellitus [Unknown]
